FAERS Safety Report 13417070 (Version 1)
Quarter: 2017Q2

REPORT INFORMATION
  Report Type: Spontaneous
  Country: US (occurrence: US)
  Receive Date: 20170407
  Receipt Date: 20170407
  Transmission Date: 20170830
  Serious: No
  Sender: FDA-Public Use
  Company Number: US-ASTRAZENECA-2017SE34956

PATIENT
  Age: 710 Month
  Sex: Male
  Weight: 181.4 kg

DRUGS (1)
  1. BEVESPI AEROSPHERE [Suspect]
     Active Substance: FORMOTEROL FUMARATE\GLYCOPYRROLATE
     Indication: CHRONIC OBSTRUCTIVE PULMONARY DISEASE
     Dosage: 9/4.8 MCG ONE PUFF TWICE PER DAY
     Route: 055
     Dates: start: 201702

REACTIONS (7)
  - Off label use [Unknown]
  - Hyperhidrosis [Unknown]
  - Dyspnoea [Unknown]
  - Fatigue [Unknown]
  - Vision blurred [Unknown]
  - Blood glucose increased [Unknown]
  - Glycosylated haemoglobin increased [Unknown]

NARRATIVE: CASE EVENT DATE: 201702
